FAERS Safety Report 8789205 (Version 1)
Quarter: 2012Q4

REPORT INFORMATION
  Report Type: Spontaneous
  Country: US (occurrence: None)
  Receive Date: 20120906
  Receipt Date: 20120906
  Transmission Date: 20130627
  Serious: Yes (Other)
  Sender: FDA-Public Use
  Company Number: None

PATIENT
  Sex: Female

DRUGS (1)
  1. BUPRON [Suspect]
     Dates: start: 201208

REACTIONS (2)
  - Drug ineffective [None]
  - Suspected counterfeit product [None]
